FAERS Safety Report 5054427-8 (Version None)
Quarter: 2006Q3

REPORT INFORMATION
  Report Type: 
  Country: None (occurrence: None)
  Receive Date: 20060713
  Receipt Date: 20060627
  Transmission Date: 20061208
  Serious: Yes (Other)
  Sender: FDA-Public Use
  Company Number: 2006PV016561

PATIENT
  Age: 58 Year
  Sex: Male

DRUGS (2)
  1. BYETTA [Suspect]
     Dosage: 10 MCG; SC
     Route: 058
     Dates: start: 20050601
  2. CYMBALTA [Concomitant]

REACTIONS (3)
  - JOINT SURGERY [None]
  - NAIL DISCOLOURATION [None]
  - ONYCHOMADESIS [None]
